FAERS Safety Report 10994014 (Version 1)
Quarter: 2015Q2

REPORT INFORMATION
  Report Type: Spontaneous
  Country: US (occurrence: None)
  Receive Date: 20150403
  Receipt Date: 20150403
  Transmission Date: 20150821
  Serious: Yes (Death, Hospitalization, Other)
  Sender: FDA-Public Use
  Company Number: CPI6857

PATIENT
  Age: 80 Year
  Sex: Female

DRUGS (2)
  1. BROMHEXINE [Concomitant]
     Active Substance: BROMHEXINE
  2. N-ACETYLCYSTEINE [Suspect]
     Active Substance: ACETYLCYSTEINE
     Indication: BILIARY TRACT DISORDER
     Dosage: OF 30 ML DAY

REACTIONS (1)
  - Biliary sepsis [None]

NARRATIVE: CASE EVENT DATE: 20110601
